FAERS Safety Report 7985174-8 (Version None)
Quarter: 2011Q4

REPORT INFORMATION
  Report Type: 
  Country: None (occurrence: None)
  Receive Date: 20111216
  Receipt Date: 20111209
  Transmission Date: 20120403
  Serious: Yes (Hospitalization)
  Sender: FDA-Public Use
  Company Number: PHHY2011CN099180

PATIENT
  Age: 56 Year
  Sex: Male

DRUGS (1)
  1. CARBAMAZEPINE [Suspect]
     Indication: AFFECTIVE DISORDER
     Dosage: 400 MG, DAILY

REACTIONS (16)
  - EPIDERMOLYSIS BULLOSA [None]
  - HEAD DISCOMFORT [None]
  - WHITE BLOOD CELL COUNT INCREASED [None]
  - OROPHARYNGEAL PAIN [None]
  - RASH MACULO-PAPULAR [None]
  - DRUG ERUPTION [None]
  - FATIGUE [None]
  - PIGMENTATION DISORDER [None]
  - ORAL MUCOSA EROSION [None]
  - DRY THROAT [None]
  - PRURITUS [None]
  - LIP SWELLING [None]
  - BODY TEMPERATURE INCREASED [None]
  - ACNE [None]
  - RASH GENERALISED [None]
  - BLISTER [None]
